FAERS Safety Report 7345290-0 (Version None)
Quarter: 2011Q1

REPORT INFORMATION
  Report Type: 
  Country: None (occurrence: None)
  Receive Date: 20110310
  Receipt Date: 20110301
  Transmission Date: 20110831
  Serious: Yes (Hospitalization)
  Sender: FDA-Public Use
  Company Number: AU-BAXTER-2011BH005275

PATIENT
  Sex: Female

DRUGS (4)
  1. DEXTROSE 5% [Suspect]
     Indication: MEDICATION DILUTION
     Route: 042
     Dates: start: 20110222
  2. ELOXITAN [Suspect]
     Route: 042
  3. STERILE WATER FOR INJECTION IN PLASTIC CONTAINER [Suspect]
     Indication: MEDICATION DILUTION
     Route: 042
     Dates: start: 20110222
  4. ELOXITAN [Suspect]
     Indication: CHEMOTHERAPY
     Route: 042
     Dates: start: 20110222

REACTIONS (5)
  - NAUSEA [None]
  - DYSPNOEA [None]
  - HYPOTENSION [None]
  - BRADYCARDIA [None]
  - FLUSHING [None]
